FAERS Safety Report 21618134 (Version 1)
Quarter: 2022Q4

REPORT INFORMATION
  Report Type: Report from Study
  Country: HN (occurrence: HN)
  Receive Date: 20221119
  Receipt Date: 20221119
  Transmission Date: 20230113
  Serious: Yes (Hospitalization, Disabling)
  Sender: FDA-Public Use
  Company Number: HN-002147023-NVSC2022HN259464

PATIENT
  Age: 78 Year
  Sex: Female

DRUGS (1)
  1. EXFORGE HCT [Suspect]
     Active Substance: AMLODIPINE BESYLATE\HYDROCHLOROTHIAZIDE\VALSARTAN
     Indication: Hypertension
     Dosage: 190 MG, QD (5/160/25 MG)
     Route: 048
     Dates: start: 2014

REACTIONS (6)
  - Osteoporosis [Not Recovered/Not Resolved]
  - Asphyxia [Unknown]
  - Pulmonary oedema [Unknown]
  - Spinal fracture [Not Recovered/Not Resolved]
  - Dysstasia [Unknown]
  - Fall [Unknown]

NARRATIVE: CASE EVENT DATE: 20210501
